FAERS Safety Report 4723127-3 (Version None)
Quarter: 2005Q3

REPORT INFORMATION
  Report Type: 
  Country: None (occurrence: None)
  Receive Date: 20050719
  Receipt Date: 20040702
  Transmission Date: 20060218
  Serious: Yes (Other)
  Sender: FDA-Public Use
  Company Number: 2004222083US

PATIENT
  Age: 88 Year
  Sex: Female

DRUGS (4)
  1. CELEBREX [Suspect]
     Dosage: ORAL
     Route: 048
     Dates: start: 20020101
  2. HYZAAR [Concomitant]
  3. SYNTHROID [Concomitant]
  4. VIOXX [Concomitant]

REACTIONS (2)
  - GASTRIC HAEMORRHAGE [None]
  - NAUSEA [None]
